FAERS Safety Report 4357092-8 (Version None)
Quarter: 2004Q2

REPORT INFORMATION
  Report Type: 
  Country: None (occurrence: None)
  Receive Date: 20040507
  Receipt Date: 20040429
  Transmission Date: 20050107
  Serious: Yes (Death, Life-Threatening)
  Sender: FDA-Public Use
  Company Number: 2004AP00913

PATIENT
  Age: 69 Year
  Sex: Male

DRUGS (8)
  1. MEROPENEM [Suspect]
     Indication: PNEUMONIA
     Dosage: 0.5 G BID IVD
     Route: 041
     Dates: start: 20031126, end: 20031128
  2. LACTEC [Concomitant]
  3. SALINE MIXTURE [Concomitant]
  4. INOVAN [Concomitant]
  5. DOPAMINE HYDROCHLORIDE [Concomitant]
  6. DOBUTREX [Concomitant]
  7. DIFLUCAN [Concomitant]
  8. AMINO ACID INJ [Concomitant]

REACTIONS (5)
  - DEPRESSED LEVEL OF CONSCIOUSNESS [None]
  - DISSEMINATED INTRAVASCULAR COAGULATION [None]
  - PANCYTOPENIA [None]
  - RASH [None]
  - SHOCK [None]
